FAERS Safety Report 6449242-4 (Version None)
Quarter: 2009Q4

REPORT INFORMATION
  Report Type: 
  Country: None (occurrence: None)
  Receive Date: 20091113
  Receipt Date: 20090729
  Transmission Date: 20100525
  Serious: Yes (Other)
  Sender: FDA-Public Use
  Company Number: APP200900435

PATIENT
  Age: 26 Year
  Sex: Female

DRUGS (4)
  1. NAROPIN [Suspect]
     Indication: LABOUR PAIN
     Dosage: 6 ML, ONCE, EPIDURAL
     Route: 008
     Dates: start: 20090726
  2. LIDOCAINE W/ EPINEPHRINE [Concomitant]
  3. BUPIVACAINE [Concomitant]
  4. FENTANYL-100 [Concomitant]

REACTIONS (1)
  - DRUG INEFFECTIVE [None]
